FAERS Safety Report 5627829-6 (Version None)
Quarter: 2008Q1

REPORT INFORMATION
  Report Type: 
  Country: None (occurrence: None)
  Receive Date: 20080215
  Receipt Date: 20080208
  Transmission Date: 20080703
  Serious: Yes (Hospitalization)
  Sender: FDA-Public Use
  Company Number: IT-BAYER-200812915GPV

PATIENT
  Age: 45 Year
  Sex: Female

DRUGS (2)
  1. ASPIRIN [Suspect]
     Indication: INFLUENZA
     Dosage: TOTAL DAILY DOSE: 200 MG  UNIT DOSE: 200 MG
     Route: 048
     Dates: start: 20080128, end: 20080130
  2. METHADONE CHLOROHYDRATE [Concomitant]
     Indication: DRUG DEPENDENCE
     Dosage: TOTAL DAILY DOSE: 60 MG  UNIT DOSE: 60 MG
     Route: 048
     Dates: start: 20060101, end: 20080130

REACTIONS (2)
  - GASTRIC MUCOSAL LESION [None]
  - GASTRITIS EROSIVE [None]
